FAERS Safety Report 8420327 (Version 2)
Quarter: 2013Q1

REPORT INFORMATION
  Report Type: Spontaneous
  Country: US (occurrence: US)
  Receive Date: 20120222
  Receipt Date: 20130225
  Transmission Date: 20140127
  Serious: No
  Sender: FDA-Public Use
  Company Number: US-BRISTOL-MYERS SQUIBB COMPANY-16202368

PATIENT
  Age: 39 Year
  Sex: Female

DRUGS (1)
  1. KENALOG-10 INJ [Suspect]
     Indication: PSORIASIS
     Dosage: RECEIVING UNDER THE SKIN

REACTIONS (1)
  - Medication error [Unknown]
